FAERS Safety Report 9580564 (Version 1)
Quarter: 2013Q4

REPORT INFORMATION
  Report Type: Spontaneous
  Country: US (occurrence: None)
  Receive Date: 20131001
  Receipt Date: 20131001
  Transmission Date: 20140711
  Serious: No
  Sender: FDA-Public Use
  Company Number: None

PATIENT
  Age: 44 Year
  Sex: Male
  Weight: 72.58 kg

DRUGS (2)
  1. LATUDA [Suspect]
     Indication: PARANOIA
     Dosage: DAILY BY MOUTH
     Dates: start: 20130805
  2. LATUDA [Suspect]
     Indication: IRRITABILITY
     Dosage: DAILY BY MOUTH
     Dates: start: 20130805

REACTIONS (3)
  - Fear [None]
  - Intentional self-injury [None]
  - Bipolar I disorder [None]
